FAERS Safety Report 13290908 (Version 3)
Quarter: 2017Q2

REPORT INFORMATION
  Report Type: Report from Study
  Country: US (occurrence: US)
  Receive Date: 20170302
  Receipt Date: 20170411
  Transmission Date: 20170830
  Serious: Yes (Other)
  Sender: FDA-Public Use
  Company Number: US-MALLINCKRODT-T201700594

PATIENT
  Sex: Female

DRUGS (1)
  1. REPOSITORY CORTICOTROPIN INJECTION [Suspect]
     Active Substance: CORTICOTROPIN
     Indication: RHEUMATOID ARTHRITIS
     Dosage: 80 UNITS TWICE WEEKLY
     Route: 058
     Dates: start: 20170109

REACTIONS (7)
  - Oedema [Not Recovered/Not Resolved]
  - Weight increased [Not Recovered/Not Resolved]
  - Dyspnoea [Not Recovered/Not Resolved]
  - Atrial fibrillation [Not Recovered/Not Resolved]
  - Headache [Recovered/Resolved]
  - Cushingoid [Not Recovered/Not Resolved]
  - Pituitary-dependent Cushing^s syndrome [Not Recovered/Not Resolved]
